FAERS Safety Report 18130639 (Version 1)
Quarter: 2020Q3

REPORT INFORMATION
  Report Type: Spontaneous
  Country: US (occurrence: US)
  Receive Date: 20200810
  Receipt Date: 20200810
  Transmission Date: 20201103
  Serious: Yes (Other)
  Sender: FDA-Public Use
  Company Number: US-AKORN PHARMACEUTICALS-2020AKN00923

PATIENT
  Age: 32 Year
  Sex: Female
  Weight: 90.25 kg

DRUGS (1)
  1. MYORISAN [Suspect]
     Active Substance: ISOTRETINOIN
     Indication: ACNE
     Dosage: 40 MG, 2X/DAY
     Route: 048
     Dates: start: 201912, end: 202006

REACTIONS (10)
  - Iron deficiency anaemia [Not Recovered/Not Resolved]
  - Gait disturbance [Recovering/Resolving]
  - Arthralgia [Recovering/Resolving]
  - Heart rate increased [Not Recovered/Not Resolved]
  - Dry skin [Recovering/Resolving]
  - Rheumatoid factor increased [Unknown]
  - White blood cell count decreased [Recovering/Resolving]
  - Epistaxis [Recovering/Resolving]
  - Back pain [Recovering/Resolving]
  - Myalgia [Not Recovered/Not Resolved]

NARRATIVE: CASE EVENT DATE: 201912
